FAERS Safety Report 11038632 (Version 3)
Quarter: 2015Q3

REPORT INFORMATION
  Report Type: Spontaneous
  Country: US (occurrence: US)
  Receive Date: 20150416
  Receipt Date: 20150820
  Transmission Date: 20151125
  Serious: Yes (Death, Hospitalization, Other)
  Sender: FDA-Public Use
  Company Number: US-009507513-1504USA015479

PATIENT
  Sex: Male
  Weight: 86.17 kg

DRUGS (2)
  1. JANUVIA [Suspect]
     Active Substance: SITAGLIPTIN PHOSPHATE
     Indication: TYPE 2 DIABETES MELLITUS
     Dosage: 100 MG, QD
     Route: 048
     Dates: start: 20070215, end: 200802
  2. BYETTA [Suspect]
     Active Substance: EXENATIDE
     Indication: TYPE 2 DIABETES MELLITUS
     Dosage: 10 MICROGRAM, BID
     Dates: start: 20070608, end: 200802

REACTIONS (39)
  - Pancreatic carcinoma metastatic [Fatal]
  - Metastases to bone [Unknown]
  - Pleural effusion [Unknown]
  - Abdominal pain [Unknown]
  - Nausea [Unknown]
  - Malignant ascites [Unknown]
  - Hyperbilirubinaemia [Unknown]
  - Nasal septum deviation [Unknown]
  - Tumour invasion [Unknown]
  - Decreased appetite [Unknown]
  - Failure to thrive [Unknown]
  - Large intestinal obstruction [Unknown]
  - Laparotomy [Unknown]
  - Adverse event [Unknown]
  - Urinary retention [Unknown]
  - Metastases to liver [Unknown]
  - Febrile neutropenia [Unknown]
  - Deep vein thrombosis [Unknown]
  - Hypertension [Unknown]
  - Small intestinal obstruction [Unknown]
  - Pulmonary embolism [Unknown]
  - Colon cancer [Unknown]
  - Colostomy [Unknown]
  - Candida infection [Unknown]
  - Deep vein thrombosis [Unknown]
  - Vena cava filter insertion [Unknown]
  - Lower gastrointestinal haemorrhage [Unknown]
  - Haemoglobin decreased [Unknown]
  - Metastases to peritoneum [Unknown]
  - Mucosal inflammation [Unknown]
  - Epistaxis [Unknown]
  - Benign prostatic hyperplasia [Unknown]
  - Diverticulum [Unknown]
  - Thrombocytopenia [Not Recovered/Not Resolved]
  - Type 1 diabetes mellitus [Unknown]
  - Metastases to spleen [Unknown]
  - Pancytopenia [Unknown]
  - Hepatic cirrhosis [Unknown]
  - Cholelithiasis [Unknown]

NARRATIVE: CASE EVENT DATE: 2008
